FAERS Safety Report 25824014 (Version 1)
Quarter: 2025Q3

REPORT INFORMATION
  Report Type: Spontaneous
  Country: US (occurrence: None)
  Receive Date: 20250919
  Receipt Date: 20250919
  Transmission Date: 20251020
  Serious: No
  Sender: FDA-CTU
  Company Number: None

PATIENT
  Age: 40 Year
  Sex: Female
  Weight: 53.55 kg

DRUGS (10)
  1. QULIPTA [Suspect]
     Active Substance: ATOGEPANT
     Indication: Headache
     Dosage: OTHER QUANTITY : 1 TABLET(S);?FREQUENCY : DAILY;?
     Route: 048
     Dates: start: 20250829, end: 20250916
  2. QULIPTA [Suspect]
     Active Substance: ATOGEPANT
     Indication: Migraine
  3. Triamcinolone topical gel Rarely [Concomitant]
  4. CLONAZEPAM [Concomitant]
     Active Substance: CLONAZEPAM
  5. MAGNESIUM [Concomitant]
     Active Substance: MAGNESIUM
  6. IRON [Concomitant]
     Active Substance: IRON
  7. DIETARY SUPPLEMENT\RESVERATROL [Concomitant]
     Active Substance: DIETARY SUPPLEMENT\RESVERATROL
  8. VITAMIN D [Concomitant]
     Active Substance: VITAMIN D NOS
  9. BIOTIN [Concomitant]
     Active Substance: BIOTIN
  10. B2 [Concomitant]

REACTIONS (5)
  - Headache [None]
  - Tinnitus [None]
  - Ear pain [None]
  - Ear discomfort [None]
  - Therapy cessation [None]

NARRATIVE: CASE EVENT DATE: 20250911
